FAERS Safety Report 22344109 (Version 1)
Quarter: 2023Q2

REPORT INFORMATION
  Report Type: Spontaneous
  Country: NL (occurrence: NL)
  Receive Date: 20230519
  Receipt Date: 20230519
  Transmission Date: 20230721
  Serious: Yes (Hospitalization, Other)
  Sender: FDA-Public Use
  Company Number: NL-LRB-00879433

PATIENT
  Age: 69 Year
  Sex: Male
  Weight: 63 kg

DRUGS (13)
  1. REMIFENTANIL [Interacting]
     Active Substance: REMIFENTANIL
     Indication: Endoscopic retrograde cholangiopancreatography
     Dosage: 1 DOSAGE FORM
     Route: 065
     Dates: start: 20230418
  2. SIMVASTATIN [Interacting]
     Active Substance: SIMVASTATIN
     Indication: Myocardial infarction
     Dosage: 40 MILLIGRAM, ONCE A DAY
     Route: 065
     Dates: start: 20070928, end: 20230419
  3. PROPOFOL [Interacting]
     Active Substance: PROPOFOL
     Indication: Endoscopic retrograde cholangiopancreatography
     Dosage: 1 DOSAGE FORM, EENMALIGE GIFT, BIJ ERCP
     Route: 065
     Dates: start: 20230418
  4. KETAMINE HYDROCHLORIDE [Interacting]
     Active Substance: KETAMINE HYDROCHLORIDE
     Indication: Endoscopic retrograde cholangiopancreatography
     Dosage: 1 DOSAGE FORM
     Route: 065
     Dates: start: 20230418
  5. ASPIRIN [Concomitant]
     Active Substance: ASPIRIN
     Indication: Product used for unknown indication
     Dosage: 80 MILLIGRAM
     Route: 065
  6. INSULIN DEGLUDEC [Concomitant]
     Active Substance: INSULIN DEGLUDEC
     Indication: Product used for unknown indication
     Dosage: UNK, INJECTIEVLOEISTOF, 100 EENHEDEN/ML (EENHEDEN PER MILLILITER)
     Route: 065
  7. METFORMIN [Concomitant]
     Active Substance: METFORMIN HYDROCHLORIDE
     Indication: Product used for unknown indication
     Dosage: 850 MILLIGRAM
     Route: 065
  8. METOPROLOL [Concomitant]
     Active Substance: METOPROLOL
     Indication: Product used for unknown indication
     Dosage: 50 MILLIGRAM
     Route: 065
  9. OXYCODONE [Concomitant]
     Active Substance: OXYCODONE
     Indication: Product used for unknown indication
     Dosage: 5 MILLIGRAM
     Route: 065
  10. OXYCODONE [Concomitant]
     Active Substance: OXYCODONE
     Indication: Product used for unknown indication
     Dosage: 10 MILLIGRAM,TABLET MET GEREGULEERDE AFGIFTE, 10 MG (MILLIGRAM)
     Route: 065
  11. INSULIN NOS [Concomitant]
     Active Substance: INSULIN NOS
     Indication: Product used for unknown indication
     Dosage: UNK,INJECTIEVLOEISTOF, 100 EENHEDEN/ML (EENHEDEN PER MILLILITER)
     Route: 065
  12. NITROGLYCERIN [Concomitant]
     Active Substance: NITROGLYCERIN
     Indication: Product used for unknown indication
     Dosage: UNK, SPRAY, 0,4 MG/DOSIS (MILLIGRAM PER DOSIS)
     Route: 065
  13. IRBESARTAN [Concomitant]
     Active Substance: IRBESARTAN
     Indication: Product used for unknown indication
     Dosage: 150 MILLIGRAM
     Route: 065

REACTIONS (3)
  - Drug interaction [Unknown]
  - Hyperkalaemia [Unknown]
  - Rhabdomyolysis [Unknown]

NARRATIVE: CASE EVENT DATE: 20230419
